FAERS Safety Report 25980661 (Version 1)
Quarter: 2025Q4

REPORT INFORMATION
  Report Type: Spontaneous
  Country: US (occurrence: None)
  Receive Date: 20251030
  Receipt Date: 20251030
  Transmission Date: 20260118
  Serious: Yes (Other)
  Sender: FDA-CTU
  Company Number: None

PATIENT
  Age: 79 Year
  Sex: Female
  Weight: 49.05 kg

DRUGS (6)
  1. KETOCONAZOLE [Suspect]
     Active Substance: KETOCONAZOLE
     Indication: Skin disorder
  2. ALBUTEROL [Concomitant]
     Active Substance: ALBUTEROL
  3. ADVAIR HFA [Concomitant]
     Active Substance: FLUTICASONE PROPIONATE\SALMETEROL XINAFOATE
  4. MIRALAX [Concomitant]
     Active Substance: POLYETHYLENE GLYCOL 3350
  5. TYLENOL [Concomitant]
     Active Substance: ACETAMINOPHEN
  6. DOCUSATE [Concomitant]
     Active Substance: DOCUSATE

REACTIONS (10)
  - Application site pain [None]
  - Overgrowth bacterial [None]
  - Overgrowth fungal [None]
  - Application site pruritus [None]
  - Pruritus [None]
  - Wrong technique in product usage process [None]
  - Wound [None]
  - Chills [None]
  - Disorientation [None]
  - Dizziness [None]

NARRATIVE: CASE EVENT DATE: 20250819
